FAERS Safety Report 7299128-0 (Version None)
Quarter: 2011Q1

REPORT INFORMATION
  Report Type: 
  Country: None (occurrence: None)
  Receive Date: 20110217
  Receipt Date: 20110207
  Transmission Date: 20110831
  Serious: Yes (Hospitalization)
  Sender: FDA-Public Use
  Company Number: FR-ROCHE-754449

PATIENT
  Sex: Male
  Weight: 69 kg

DRUGS (8)
  1. MEPRONIZINE [Concomitant]
     Indication: INSOMNIA
     Route: 048
     Dates: start: 20080929
  2. RIBAVIRIN [Suspect]
     Indication: HEPATITIS C
     Route: 048
     Dates: start: 20080609, end: 20090202
  3. EUPRESSYL [Concomitant]
     Indication: HYPERTENSION
  4. PEGINTERFERON ALFA-2A [Suspect]
     Route: 042
     Dates: start: 20080609, end: 20081207
  5. PEGINTERFERON ALFA-2A [Suspect]
     Route: 042
     Dates: start: 20081208, end: 20090202
  6. HYDREA [Concomitant]
     Dates: start: 19890101, end: 20090101
  7. LASIX [Concomitant]
     Indication: HYPERTENSION
  8. AMLOR [Concomitant]
     Indication: HYPERTENSION

REACTIONS (1)
  - RENAL FAILURE ACUTE [None]
